FAERS Safety Report 4685242-2 (Version None)
Quarter: 2005Q2

REPORT INFORMATION
  Report Type: 
  Country: None (occurrence: None)
  Receive Date: 20050608
  Receipt Date: 20050526
  Transmission Date: 20051028
  Serious: Yes (Other)
  Sender: FDA-Public Use
  Company Number: BE-JNJFOC-20041207628

PATIENT
  Sex: Female

DRUGS (18)
  1. INFLIXIMAB [Suspect]
     Route: 042
  2. INFLIXIMAB [Suspect]
     Route: 042
  3. INFLIXIMAB [Suspect]
     Indication: ENDOMETRIOSIS
     Route: 042
  4. PLACEBO [Suspect]
     Route: 042
  5. PLACEBO [Suspect]
     Route: 042
  6. PLACEBO [Suspect]
     Indication: ENDOMETRIOSIS
     Route: 042
  7. ASPIRIN [Concomitant]
     Route: 049
  8. ASPIRIN [Concomitant]
     Route: 049
  9. ASPIRIN [Concomitant]
     Route: 049
  10. ASPIRIN [Concomitant]
     Indication: ABDOMINAL PAIN
     Route: 049
  11. GENERAL ANAESTHETIC [Concomitant]
     Indication: SURGERY
     Route: 042
  12. UBRETID [Concomitant]
     Indication: URINARY TRACT DISORDER
     Route: 049
  13. UNSPECIFIED ANTIBIOTICS [Concomitant]
     Route: 049
  14. UNSPECIFIED ANTIBIOTICS [Concomitant]
     Indication: CYSTITIS
     Route: 049
  15. AUGMENTIN [Concomitant]
     Route: 065
  16. AUGMENTIN [Concomitant]
     Route: 065
  17. FOLIC ACID [Concomitant]
     Route: 065
  18. ORGAMETRIL [Concomitant]
     Route: 065

REACTIONS (2)
  - ACUTE LYMPHOCYTIC LEUKAEMIA [None]
  - DEEP VEIN THROMBOSIS [None]
